FAERS Safety Report 17364503 (Version 2)
Quarter: 2020Q2

REPORT INFORMATION
  Report Type: Report from Study
  Country: US (occurrence: US)
  Receive Date: 20200204
  Receipt Date: 20200423
  Transmission Date: 20200713
  Serious: No
  Sender: FDA-Public Use
  Company Number: NVSC2020US027049

PATIENT
  Sex: Male

DRUGS (1)
  1. ILARIS [Suspect]
     Active Substance: CANAKINUMAB
     Indication: AUTOIMMUNE DISORDER
     Dosage: 45 MG, Q4W
     Route: 058
     Dates: start: 201910

REACTIONS (3)
  - Lymphadenopathy [Unknown]
  - Pyrexia [Unknown]
  - Stomatitis [Unknown]
